FAERS Safety Report 9535180 (Version 1)
Quarter: 2013Q3

REPORT INFORMATION
  Report Type: Spontaneous
  Country: US (occurrence: US)
  Receive Date: 20130918
  Receipt Date: 20130918
  Transmission Date: 20140515
  Serious: No
  Sender: FDA-Public Use
  Company Number: US-PURDUE-USA-2012-0091798

PATIENT
  Age: 36 Year
  Sex: Male

DRUGS (1)
  1. INTERMEZZO [Suspect]
     Indication: PRODUCT USED FOR UNKNOWN INDICATION
     Dosage: 1.75 MG, UNK

REACTIONS (3)
  - Incorrect dose administered [Unknown]
  - Product taste abnormal [Unknown]
  - Product solubility abnormal [Unknown]
